FAERS Safety Report 7387301-2 (Version None)
Quarter: 2011Q1

REPORT INFORMATION
  Report Type: 
  Country: None (occurrence: None)
  Receive Date: 20110331
  Receipt Date: 20110318
  Transmission Date: 20110831
  Serious: Yes (Other)
  Sender: FDA-Public Use
  Company Number: IT-ELI_LILLY_AND_COMPANY-IT201102001135

PATIENT
  Sex: Male

DRUGS (6)
  1. TRAVATAN [Concomitant]
  2. MODURET [Concomitant]
     Dosage: 1 D/F, DAILY (1/D)
  3. NORVASC [Concomitant]
     Dosage: 5 MG, UNK
  4. COSOPT [Concomitant]
  5. ANTIGLAUCOMA PREPARATIONS AND MIOTICS [Concomitant]
     Indication: GLAUCOMA
  6. CIALIS [Suspect]
     Indication: ERECTILE DYSFUNCTION
     Dosage: 5 MG, DAILY (1/D)
     Route: 048
     Dates: start: 20100901, end: 20101201

REACTIONS (1)
  - OCULAR HYPERTENSION [None]
